FAERS Safety Report 6073048-1 (Version None)
Quarter: 2009Q1

REPORT INFORMATION
  Report Type: 
  Country: None (occurrence: None)
  Receive Date: 20090211
  Receipt Date: 20090204
  Transmission Date: 20090719
  Serious: Yes (Other)
  Sender: FDA-Public Use
  Company Number: ES-BRISTOL-MYERS SQUIBB COMPANY-14492953

PATIENT
  Age: 50 Year
  Sex: Male

DRUGS (5)
  1. REYATAZ [Suspect]
  2. EPIVIR [Suspect]
  3. RETROVIR [Suspect]
  4. NORVIR [Suspect]
  5. LOPID [Suspect]

REACTIONS (1)
  - MUSCLE RUPTURE [None]
